FAERS Safety Report 8006487-X (Version None)
Quarter: 2011Q4

REPORT INFORMATION
  Report Type: 
  Country: None (occurrence: None)
  Receive Date: 20111226
  Receipt Date: 20111215
  Transmission Date: 20120403
  Serious: Yes (Other)
  Sender: FDA-Public Use
  Company Number: PHEH2009US18152

PATIENT
  Sex: Female

DRUGS (6)
  1. CARDURA [Suspect]
     Dosage: 1 MG, BID
     Dates: start: 20091101
  2. ASPIRIN [Concomitant]
     Dosage: 81 MG
  3. LASIX [Suspect]
  4. OXYGEN THERAPY [Concomitant]
  5. DIOVAN [Suspect]
     Dosage: 160 MG, TWICE DAILY
  6. DIURETICS [Suspect]

REACTIONS (7)
  - DRUG INEFFECTIVE [None]
  - SPINAL FRACTURE [None]
  - FALL [None]
  - DRY MOUTH [None]
  - DYSPNOEA [None]
  - NERVOUSNESS [None]
  - DIZZINESS [None]
